FAERS Safety Report 8503239-9 (Version None)
Quarter: 2012Q3

REPORT INFORMATION
  Report Type: 
  Country: None (occurrence: None)
  Receive Date: 20120711
  Receipt Date: 20120706
  Transmission Date: 20120928
  Serious: Yes (Hospitalization, Other)
  Sender: FDA-Public Use
  Company Number: US-PFIZER INC-2012162416

PATIENT
  Age: 45 Year
  Sex: Female

DRUGS (1)
  1. LYRICA [Suspect]
     Indication: FIBROMYALGIA
     Dosage: 100 MG, 2X/DAY

REACTIONS (8)
  - LOSS OF CONSCIOUSNESS [None]
  - LUNG DISORDER [None]
  - ALOPECIA [None]
  - SOMNOLENCE [None]
  - GRAND MAL CONVULSION [None]
  - IMPAIRED DRIVING ABILITY [None]
  - WEIGHT INCREASED [None]
  - CONVULSION [None]
